FAERS Safety Report 5323855-5 (Version None)
Quarter: 2007Q2

REPORT INFORMATION
  Report Type: 
  Country: None (occurrence: None)
  Receive Date: 20070514
  Receipt Date: 20070507
  Transmission Date: 20071010
  Serious: Yes (Life-Threatening, Hospitalization)
  Sender: FDA-Public Use
  Company Number: B0470651A

PATIENT
  Age: 65 Year
  Sex: Female

DRUGS (6)
  1. SEROXAT [Suspect]
     Dosage: 20MG PER DAY
     Route: 048
  2. SINTROM [Suspect]
     Route: 048
     Dates: start: 19960101, end: 20070201
  3. DIGOXIN [Suspect]
     Route: 048
  4. CALCITONIN-SALMON [Suspect]
     Indication: OSTEOPOROSIS
     Route: 048
  5. EMEPROTON [Suspect]
     Indication: PROPHYLAXIS
     Route: 048
  6. SEROPRAM [Suspect]
     Route: 048

REACTIONS (3)
  - APHASIA [None]
  - COORDINATION ABNORMAL [None]
  - HAEMORRHAGE INTRACRANIAL [None]
